FAERS Safety Report 5319091-9 (Version None)
Quarter: 2007Q2

REPORT INFORMATION
  Report Type: 
  Country: None (occurrence: None)
  Receive Date: 20070508
  Receipt Date: 20070504
  Transmission Date: 20071010
  Serious: Yes (Life-Threatening)
  Sender: FDA-Public Use
  Company Number: A0605519A

PATIENT
  Age: 53 Year
  Sex: Female
  Weight: 76 kg

DRUGS (17)
  1. FOSAMPRENAVIR [Suspect]
     Indication: HIV INFECTION
     Dosage: 2TAB PER DAY
     Route: 048
     Dates: start: 20050906
  2. RITONAVIR [Suspect]
     Indication: HIV INFECTION
     Dosage: 100MG PER DAY
     Route: 048
     Dates: start: 20050906
  3. LAMIVUDINE [Suspect]
     Indication: HIV INFECTION
     Dosage: 300MG PER DAY
     Route: 048
     Dates: start: 20050906
  4. TENOFOVIR [Suspect]
     Indication: HIV INFECTION
     Dosage: 300MG PER DAY
     Route: 048
     Dates: start: 20050906
  5. BLINDED TRIAL MEDICATION [Suspect]
     Indication: HIV INFECTION
     Route: 048
     Dates: start: 20050909
  6. LOSEC [Concomitant]
     Dates: start: 20050503
  7. ALTACE [Concomitant]
     Dates: start: 20050805
  8. APO SULFATRIM [Concomitant]
     Dates: start: 20050503
  9. CALCIUM CHLORIDE [Concomitant]
     Dates: start: 20050803
  10. INSULIN [Concomitant]
     Dates: start: 20050803
  11. LIPIDIL [Concomitant]
     Dates: start: 20050803
  12. ATIVAN [Concomitant]
     Dates: start: 20050803
  13. ATARAX [Concomitant]
     Indication: HIV INFECTION
     Dates: start: 20050503
  14. ACETAMINOPHEN [Concomitant]
     Dates: start: 20050803
  15. AVANDIA [Concomitant]
     Dates: start: 20050803
  16. CELEBREX [Concomitant]
     Route: 048
     Dates: start: 20050308
  17. SEPTRA [Concomitant]
     Route: 048
     Dates: start: 20050305

REACTIONS (4)
  - ANGINA UNSTABLE [None]
  - CREPITATIONS [None]
  - DYSPNOEA [None]
  - MITRAL VALVE INCOMPETENCE [None]
